FAERS Safety Report 11376328 (Version 3)
Quarter: 2017Q1

REPORT INFORMATION
  Report Type: Spontaneous
  Country: US (occurrence: US)
  Receive Date: 20150813
  Receipt Date: 20170223
  Transmission Date: 20170428
  Serious: No
  Sender: FDA-Public Use
  Company Number: US-PFIZER INC-2015266162

PATIENT
  Age: 65 Year
  Sex: Female

DRUGS (29)
  1. LYRICA [Suspect]
     Active Substance: PREGABALIN
     Indication: CUTANEOUS LUPUS ERYTHEMATOSUS
     Dosage: 150 MG, 3X/DAY
     Route: 048
     Dates: start: 20110224
  2. ALBUTEROL SULFATE. [Concomitant]
     Active Substance: ALBUTEROL SULFATE
     Dosage: UNK UNK, AS NEEDED ((2.5MG/3ML) ) (USE 1 VIAL IN NEBULIZER EVERY 6 HOURS)
     Route: 055
     Dates: start: 20100817
  3. HUMULIN R [Concomitant]
     Active Substance: INSULIN HUMAN
     Dosage: UNK (USE AS DIRECTED PER INSULIN PUMP, MAX OF 2000 UNITS DAILY)
     Route: 058
     Dates: start: 20110224
  4. LEVOTHYROXINE SODIUM. [Concomitant]
     Active Substance: LEVOTHYROXINE SODIUM
     Dosage: 50 UG, DAILY
     Route: 048
     Dates: start: 20110224
  5. SINGULAIR [Concomitant]
     Active Substance: MONTELUKAST SODIUM
     Dosage: 10 MG, 1X/DAY
     Route: 048
     Dates: start: 20110323
  6. RESTASIS [Concomitant]
     Active Substance: CYCLOSPORINE
     Dosage: 1 GTT, 2X/DAY(AS DIRECTED)
     Route: 047
     Dates: start: 20140312
  7. RESTASIS [Concomitant]
     Active Substance: CYCLOSPORINE
     Dosage: 2 GTT, 2X/DAY [1 DROP IN BOTH EYES EVERY 12 HOURS DAILY]
     Route: 047
     Dates: start: 20161013
  8. ALDACTONE [Concomitant]
     Active Substance: SPIRONOLACTONE
     Dosage: 50 MG, DAILY
     Route: 048
     Dates: start: 20131126
  9. ASPIRIN (E.C.) [Concomitant]
     Active Substance: ASPIRIN
     Dosage: 81 MG, DAILY
     Route: 048
     Dates: start: 20160906
  10. CALCIPOTRIENE. [Concomitant]
     Active Substance: CALCIPOTRIENE
     Dosage: UNK UNK, 2X/DAY (APPLY A THIN LAYER TO AFFECTED AREA(S))
     Route: 061
     Dates: start: 20160516
  11. NEXIUM [Concomitant]
     Active Substance: ESOMEPRAZOLE MAGNESIUM
     Dosage: 40 MG, DAILY
     Route: 048
     Dates: start: 20110331
  12. LOSARTAN POTASSIUM. [Concomitant]
     Active Substance: LOSARTAN POTASSIUM
     Dosage: 25 MG, DAILY
     Route: 048
     Dates: start: 20161121
  13. TERBINAFINE HCL [Concomitant]
     Active Substance: TERBINAFINE HYDROCHLORIDE
     Indication: LIVER DISORDER
     Dosage: 250 MG, DAILY
     Route: 048
     Dates: start: 20160516
  14. DULERA [Concomitant]
     Active Substance: FORMOTEROL FUMARATE DIHYDRATE\MOMETASONE FUROATE
     Dosage: 1 DF, 2X/DAY [FORMOTEROL FUMARATE-5]/ [MOMETASONE FUROATE-200]
     Route: 055
     Dates: start: 20101118
  15. XYZAL [Concomitant]
     Active Substance: LEVOCETIRIZINE DIHYDROCHLORIDE
     Dosage: 5 MG, DAILY(EVERYDAY)
     Route: 048
     Dates: start: 20110224
  16. CELEBREX [Concomitant]
     Active Substance: CELECOXIB
     Indication: SPINAL OSTEOARTHRITIS
     Dosage: 200 MG, 1X/DAY (Q DAY)
     Route: 048
     Dates: start: 20131022
  17. BACTROBAN [Concomitant]
     Active Substance: MUPIROCIN\MUPIROCIN CALCIUM
     Dosage: 30 G, 3X/DAY
     Route: 061
     Dates: start: 20160410
  18. VENTOLIN HFA [Concomitant]
     Active Substance: ALBUTEROL SULFATE
     Dosage: 2 DF, AS NEEDED (3 TIMES DAILY, 108 (90 BASE) MCG/ACT )
     Route: 055
     Dates: start: 20100727
  19. VITAMIN D2 [Concomitant]
     Active Substance: ERGOCALCIFEROL
     Indication: VITAMIN D DEFICIENCY
     Dosage: 50000 IU, WEEKLY
     Route: 048
     Dates: start: 20110224
  20. LYRICA [Suspect]
     Active Substance: PREGABALIN
     Dosage: UNK UNK, 2X/DAY (150, BID)
  21. ALPRAZOLAM. [Concomitant]
     Active Substance: ALPRAZOLAM
     Dosage: 0.25 MG, 3X/DAY
     Route: 048
     Dates: start: 20100727
  22. FENOFIBRATE. [Concomitant]
     Active Substance: FENOFIBRATE
     Dosage: 54 MG, DAILY
     Route: 048
     Dates: start: 20140610
  23. CELEBREX [Concomitant]
     Active Substance: CELECOXIB
     Indication: LUMBAR RADICULOPATHY
  24. CRESTOR [Concomitant]
     Active Substance: ROSUVASTATIN CALCIUM
     Dosage: 20 MG, DAILY
     Route: 048
     Dates: start: 20110711
  25. SKELAXIN [Concomitant]
     Active Substance: METAXALONE
     Indication: PAIN
     Dosage: 800 MG, AS NEEDED (THREE TIMES DAILY)
     Route: 048
     Dates: start: 20140107
  26. AMBIEN CR [Concomitant]
     Active Substance: ZOLPIDEM TARTRATE
     Dosage: 12.5 MG, 1X/DAY (EVERY NIGHT AT BEDTIME)
     Route: 048
     Dates: start: 20110224
  27. SKELAXIN [Concomitant]
     Active Substance: METAXALONE
     Indication: CUTANEOUS LUPUS ERYTHEMATOSUS
  28. XANAX [Concomitant]
     Active Substance: ALPRAZOLAM
     Dosage: 0.25 MG, 3X/DAY
     Route: 048
     Dates: start: 20110224
  29. FLUTICASONE PROPIONATE. [Concomitant]
     Active Substance: FLUTICASONE PROPIONATE
     Dosage: UNK UNK, DAILY(50MCG/ACT ) (INSTILL 2 SQUIRT DAILY IN EACH NOSTRIL)
     Route: 045
     Dates: start: 20130722

REACTIONS (3)
  - Paraesthesia [Unknown]
  - Product use issue [Unknown]
  - Pain in extremity [Unknown]

NARRATIVE: CASE EVENT DATE: 20110224
